FAERS Safety Report 7477812-3 (Version None)
Quarter: 2011Q2

REPORT INFORMATION
  Report Type: 
  Country: None (occurrence: None)
  Receive Date: 20110511
  Receipt Date: 20110511
  Transmission Date: 20111010
  Serious: Yes (Hospitalization)
  Sender: FDA-Public Use
  Company Number: None

PATIENT
  Age: 54 Year
  Sex: Male

DRUGS (2)
  1. DOXYCYCLINE [Suspect]
     Dosage: 100 MG BID PO
     Route: 048
     Dates: start: 20110420, end: 20110422
  2. CEFPODOXIME PROXETIL [Suspect]
     Dosage: 100 MG EVERY DAY PO
     Route: 048
     Dates: start: 20110420, end: 20110422

REACTIONS (1)
  - PANCREATITIS [None]
